FAERS Safety Report 19804153 (Version 2)
Quarter: 2022Q3

REPORT INFORMATION
  Report Type: Spontaneous
  Country: US (occurrence: None)
  Receive Date: 20210908
  Receipt Date: 20220907
  Transmission Date: 20221027
  Serious: No
  Sender: FDA-Public Use
  Company Number: US-FARMAPROD-202107-1081

PATIENT
  Age: 68 Year
  Sex: Female

DRUGS (3)
  1. OXERVATE [Suspect]
     Active Substance: CENEGERMIN-BKBJ
     Indication: Neurotrophic keratopathy
     Route: 047
     Dates: start: 20210621
  2. PRED FORTE [Concomitant]
     Active Substance: PREDNISOLONE ACETATE
  3. MOXIFLOXACIN [Concomitant]
     Active Substance: MOXIFLOXACIN

REACTIONS (9)
  - Sinus disorder [Unknown]
  - Eye pain [Unknown]
  - Ocular hyperaemia [Unknown]
  - Eye inflammation [Unknown]
  - Headache [Not Recovered/Not Resolved]
  - Eyelid pain [Not Recovered/Not Resolved]
  - Periorbital pain [Not Recovered/Not Resolved]
  - Facial pain [Unknown]
  - Rhinalgia [Unknown]
